FAERS Safety Report 7235030-8 (Version None)
Quarter: 2011Q1

REPORT INFORMATION
  Report Type: 
  Country: None (occurrence: None)
  Receive Date: 20110120
  Receipt Date: 20110107
  Transmission Date: 20110831
  Serious: Yes (Hospitalization, Other)
  Sender: FDA-Public Use
  Company Number: US-CELGENEUS-163-21880-10111503

PATIENT
  Sex: Female
  Weight: 96.248 kg

DRUGS (21)
  1. DEXAMETHASONE [Concomitant]
     Route: 065
  2. VANCOMYCIN [Concomitant]
     Route: 051
  3. ZOMETA [Suspect]
     Route: 065
  4. POTASSIUM CHLORIDE [Concomitant]
     Route: 065
  5. DEXILANT [Concomitant]
     Route: 048
  6. SYNTHROID [Concomitant]
     Route: 048
  7. ISOSORBIDE DINITRATE [Concomitant]
     Route: 048
  8. PROAIR HFA [Concomitant]
     Dosage: 2 PUFFS
     Route: 055
  9. NIASPAN [Concomitant]
     Route: 065
  10. NITROGLYCERIN [Concomitant]
     Route: 048
  11. ROCEPHIN [Concomitant]
     Route: 065
  12. NITROLAR [Concomitant]
     Route: 065
  13. AVELOX [Concomitant]
     Route: 048
  14. BYSTOLIC [Concomitant]
     Route: 048
  15. CALTRATE [Concomitant]
     Route: 065
  16. REVLIMID [Suspect]
     Indication: MULTIPLE MYELOMA
     Route: 048
     Dates: start: 20081017
  17. POTASSIUM CHLORIDE [Concomitant]
     Route: 048
  18. CIPROFLOXACIN [Concomitant]
     Route: 048
  19. CEFEPIME [Concomitant]
     Route: 065
  20. ASPIRIN [Concomitant]
     Route: 065
  21. CRESTOR [Concomitant]
     Route: 065

REACTIONS (4)
  - GASTRITIS [None]
  - PAIN IN EXTREMITY [None]
  - OSTEONECROSIS OF JAW [None]
  - PNEUMONIA [None]
